FAERS Safety Report 9019004 (Version 1)
Quarter: 2013Q1

REPORT INFORMATION
  Report Type: Spontaneous
  Country: US (occurrence: US)
  Receive Date: 20130118
  Receipt Date: 20130118
  Transmission Date: 20140127
  Serious: Yes (Death)
  Sender: FDA-Public Use
  Company Number: US-ABBOTT-13P-163-1036988-00

PATIENT
  Age: 22 Year
  Sex: Male

DRUGS (12)
  1. ACETAMINOPHEN\HYDROCODONE [Suspect]
     Indication: PRODUCT USED FOR UNKNOWN INDICATION
  2. ACETAMINOPHEN\HYDROCODONE [Suspect]
  3. ACETAMINOPHEN\HYDROCODONE [Suspect]
     Route: 065
  4. MORPHINE [Suspect]
     Indication: PRODUCT USED FOR UNKNOWN INDICATION
  5. MORPHINE [Suspect]
  6. MORPHINE [Suspect]
     Route: 065
  7. OXYCODONE [Suspect]
     Indication: PRODUCT USED FOR UNKNOWN INDICATION
  8. OXYCODONE [Suspect]
  9. OXYCODONE [Suspect]
     Route: 065
  10. ALPRAZOLAM [Suspect]
     Indication: PRODUCT USED FOR UNKNOWN INDICATION
  11. ALPRAZOLAM [Suspect]
  12. ALPRAZOLAM [Suspect]
     Route: 065

REACTIONS (1)
  - Intentional drug misuse [Fatal]
